APPROVED DRUG PRODUCT: PRIMAQUINE PHOSPHATE
Active Ingredient: PRIMAQUINE PHOSPHATE
Strength: EQ 15MG BASE
Dosage Form/Route: TABLET;ORAL
Application: A206043 | Product #001 | TE Code: AB
Applicant: NOVAST LABORATORIES LTD
Approved: Jun 23, 2016 | RLD: No | RS: No | Type: RX